FAERS Safety Report 11863662 (Version 1)
Quarter: 2015Q4

REPORT INFORMATION
  Report Type: Spontaneous
  Country: None (occurrence: None)
  Receive Date: 20151222
  Receipt Date: 20151222
  Transmission Date: 20160305
  Serious: No
  Sender: FDA-Public Use
  Company Number: None

PATIENT
  Age: 63 Year
  Sex: Male

DRUGS (1)
  1. BIMATOPROST. [Suspect]
     Active Substance: BIMATOPROST

REACTIONS (2)
  - Vision blurred [None]
  - Eye disorder [None]
